FAERS Safety Report 9038105 (Version 2)
Quarter: 2013Q1

REPORT INFORMATION
  Report Type: Spontaneous
  Country: US (occurrence: US)
  Receive Date: 20130129
  Receipt Date: 20130207
  Transmission Date: 20140127
  Serious: Yes (Hospitalization)
  Sender: FDA-Public Use
  Company Number: US-GILEAD-2013-0068516

PATIENT
  Sex: Female

DRUGS (3)
  1. LETAIRIS [Suspect]
     Indication: COR PULMONALE CHRONIC
     Dosage: 10 MG, QD
     Route: 048
     Dates: start: 20100125
  2. REMODULIN [Concomitant]
  3. ADCIRCA [Concomitant]
     Indication: COR PULMONALE CHRONIC

REACTIONS (2)
  - Pneumonia [Unknown]
  - Respiratory failure [Unknown]
